FAERS Safety Report 12341946 (Version 4)
Quarter: 2017Q1

REPORT INFORMATION
  Report Type: Report from Study
  Country: AU (occurrence: AU)
  Receive Date: 20160506
  Receipt Date: 20170125
  Transmission Date: 20170428
  Serious: Yes (Hospitalization, Other)
  Sender: FDA-Public Use
  Company Number: AU-JNJFOC-20160502167

PATIENT
  Age: 77 Year
  Sex: Male

DRUGS (1)
  1. STELARA [Suspect]
     Active Substance: USTEKINUMAB
     Indication: PSORIASIS
     Dosage: SITE OF ADMINISTRATION: LEG
     Route: 058
     Dates: start: 20150220, end: 20160412

REACTIONS (5)
  - Weight decreased [Not Recovered/Not Resolved]
  - Ophthalmic herpes zoster [Recovering/Resolving]
  - Cerebral haemorrhage [Recovering/Resolving]
  - Psoriasis [Not Recovered/Not Resolved]
  - Herpes zoster meningoencephalitis [Recovering/Resolving]

NARRATIVE: CASE EVENT DATE: 20160421
